FAERS Safety Report 7578101-9 (Version None)
Quarter: 2011Q2

REPORT INFORMATION
  Report Type: 
  Country: None (occurrence: None)
  Receive Date: 20110628
  Receipt Date: 20110613
  Transmission Date: 20111010
  Serious: Yes (Other)
  Sender: FDA-Public Use
  Company Number: IN-WATSON-2011-09464

PATIENT

DRUGS (1)
  1. DEFEROXAMINE MESYLATE [Suspect]
     Indication: CHELATION THERAPY
     Dosage: UNK
     Route: 058

REACTIONS (5)
  - OPTIC ATROPHY [None]
  - RETINAL VASCULAR DISORDER [None]
  - CATARACT [None]
  - OPTIC DISCS BLURRED [None]
  - OPTIC DISC HYPERAEMIA [None]
